FAERS Safety Report 9742336 (Version 1)
Quarter: 2013Q4

REPORT INFORMATION
  Report Type: Spontaneous
  Country: US (occurrence: US)
  Receive Date: 20131210
  Receipt Date: 20131210
  Transmission Date: 20140711
  Serious: No
  Sender: FDA-Public Use
  Company Number: US-ENDO PHARMACEUTICALS INC.-SPIR20110013

PATIENT
  Sex: Female

DRUGS (1)
  1. SPIRONOLACTONE TABLETS [Suspect]
     Indication: PRODUCT USED FOR UNKNOWN INDICATION
     Dosage: UNKNOWN
     Route: 048

REACTIONS (4)
  - Depression [Unknown]
  - Sinusitis [Unknown]
  - Lethargy [Unknown]
  - Vision blurred [Unknown]
